FAERS Safety Report 9951994 (Version 1)
Quarter: 2014Q1

REPORT INFORMATION
  Report Type: Report from Study
  Country: US (occurrence: US)
  Receive Date: 20140304
  Receipt Date: 20140304
  Transmission Date: 20141002
  Serious: No
  Sender: FDA-Public Use
  Company Number: US-ABBVIE-13P-163-1071933-00

PATIENT
  Age: 54 Year
  Sex: Female

DRUGS (3)
  1. HUMIRA [Suspect]
     Indication: CROHN^S DISEASE
     Dates: start: 201209
  2. COLESTID [Concomitant]
     Indication: CROHN^S DISEASE
  3. VITAMIN B12 [Concomitant]
     Indication: CROHN^S DISEASE
     Dosage: MONTHLY

REACTIONS (3)
  - Tinnitus [Recovering/Resolving]
  - Blood pressure increased [Recovering/Resolving]
  - Pain [Recovering/Resolving]
